FAERS Safety Report 12536719 (Version 2)
Quarter: 2016Q3

REPORT INFORMATION
  Report Type: Report from Study
  Country: NL (occurrence: NL)
  Receive Date: 20160707
  Receipt Date: 20160719
  Transmission Date: 20161109
  Serious: Yes (Death)
  Sender: FDA-Public Use
  Company Number: NL-ABBVIE-16K-114-1668369-00

PATIENT
  Sex: Male

DRUGS (1)
  1. DUODOPA [Suspect]
     Active Substance: CARBIDOPA\LEVODOPA
     Indication: PARKINSON^S DISEASE
     Dosage: MORNING DOSE: 7.4, CONTINUOUS DOSE: 2.8, EXTRA DOSE: 3
     Route: 050
     Dates: start: 20120412, end: 20160702

REACTIONS (2)
  - Cardiac arrest [Fatal]
  - Fall [Unknown]
